FAERS Safety Report 9345828 (Version 1)
Quarter: 2013Q2

REPORT INFORMATION
  Report Type: Spontaneous
  Country: BR (occurrence: BR)
  Receive Date: 20130613
  Receipt Date: 20130613
  Transmission Date: 20140414
  Serious: Yes (Other)
  Sender: FDA-Public Use
  Company Number: BR-MERCK-1306BRA005428

PATIENT
  Sex: Female

DRUGS (4)
  1. SIMVASTATIN [Suspect]
     Dosage: UNK, UNKNOWN
     Route: 048
  2. SIMVASTATIN [Suspect]
     Dosage: UNK, UNKNOWN
     Route: 048
     Dates: start: 201305
  3. LIPITOR [Concomitant]
     Dosage: HALF TABLET, 80 MG TABLET, QD
     Dates: start: 2012, end: 2013
  4. LIPITOR [Concomitant]
     Dosage: 40 MG, QD
     Dates: end: 201305

REACTIONS (4)
  - Ankle operation [Unknown]
  - Ankle fracture [Unknown]
  - Gastritis [Unknown]
  - Muscle spasms [Recovering/Resolving]
